FAERS Safety Report 17740235 (Version 5)
Quarter: 2021Q1

REPORT INFORMATION
  Report Type: Spontaneous
  Country: US (occurrence: US)
  Receive Date: 20200504
  Receipt Date: 20210104
  Transmission Date: 20210419
  Serious: No
  Sender: FDA-Public Use
  Company Number: US-PFIZER INC-2020131633

PATIENT
  Age: 60 Year
  Sex: Female

DRUGS (3)
  1. XELJANZ XR [Suspect]
     Active Substance: TOFACITINIB CITRATE
     Indication: RHEUMATOID ARTHRITIS
     Dosage: 11 MG, DAILY
     Route: 048
     Dates: start: 202001, end: 2020
  2. XELJANZ XR [Suspect]
     Active Substance: TOFACITINIB CITRATE
     Dosage: 11 MG, DAILY
     Route: 048
     Dates: start: 2020
  3. XELJANZ XR [Suspect]
     Active Substance: TOFACITINIB CITRATE
     Dosage: 11 MG, DAILY
     Route: 048
     Dates: start: 202001, end: 202012

REACTIONS (7)
  - Swelling [Unknown]
  - White blood cell count decreased [Unknown]
  - Balance disorder [Recovered/Resolved]
  - Therapeutic product effect incomplete [Unknown]
  - Dizziness [Unknown]
  - Otolithiasis [Recovered/Resolved]
  - Allergy to arthropod bite [Unknown]

NARRATIVE: CASE EVENT DATE: 2020
